FAERS Safety Report 14826350 (Version 3)
Quarter: 2018Q2

REPORT INFORMATION
  Report Type: Spontaneous
  Country: JP (occurrence: JP)
  Receive Date: 20180430
  Receipt Date: 20180601
  Transmission Date: 20180711
  Serious: Yes (Hospitalization)
  Sender: FDA-Public Use
  Company Number: JP-JT-EVA201801147KERYXP-001

PATIENT
  Age: 75 Year
  Sex: Male
  Weight: 54 kg

DRUGS (13)
  1. BAYASPIRIN [Concomitant]
     Active Substance: ASPIRIN
     Indication: ANGINA PECTORIS
     Dosage: UNK UNK, QD
     Route: 048
     Dates: start: 20180228
  2. REMITCH [Concomitant]
     Active Substance: NALFURAFINE HYDROCHLORIDE
     Indication: PRURITUS
     Dosage: UNK UNK, QD
     Route: 048
     Dates: start: 20180410
  3. FEBURIC [Concomitant]
     Active Substance: FEBUXOSTAT
     Indication: HYPERURICAEMIA
     Dosage: UNK UNK, QD
     Route: 048
  4. ROHYPNOL [Concomitant]
     Active Substance: FLUNITRAZEPAM
     Indication: INSOMNIA
     Dosage: 1 DF, UNK
     Route: 048
  5. CRESTOR [Concomitant]
     Active Substance: ROSUVASTATIN CALCIUM
     Indication: CORONARY ARTERY STENOSIS
     Dosage: UNK UNK, QD
     Route: 048
     Dates: start: 20180228
  6. TAKECAB [Concomitant]
     Active Substance: VONOPRAZAN FUMURATE
     Indication: CHRONIC GASTRITIS
     Dosage: UNK UNK, QD
     Route: 048
     Dates: start: 20180228
  7. RIONA [Suspect]
     Active Substance: FERRIC CITRATE ANHYDROUS
     Indication: HYPERPHOSPHATAEMIA
     Dosage: UNK, BID
     Route: 048
  8. GLYCEOL                            /00744501/ [Concomitant]
     Active Substance: GLYCERIN
     Indication: DIALYSIS DISEQUILIBRIUM SYNDROME
     Dosage: 200 ML, QD
     Route: 041
  9. MOHRUS [Concomitant]
     Active Substance: KETOPROFEN
     Indication: MYALGIA
     Dosage: 1 DF, QD
     Route: 062
  10. GOREISAN                           /08015901/ [Concomitant]
     Active Substance: HERBALS
     Indication: CHRONIC KIDNEY DISEASE
     Dosage: UNK UNK, BID
     Route: 048
  11. FOSRENOL [Concomitant]
     Active Substance: LANTHANUM CARBONATE
     Indication: HYPERPHOSPHATAEMIA
     Dosage: UNK UNK, TID
     Route: 048
     Dates: start: 20180118
  12. INVESTIGATIONAL DRUG [Concomitant]
     Active Substance: INVESTIGATIONAL PRODUCT
     Indication: NEPHROGENIC ANAEMIA
     Dosage: UNK UNK, QD
     Route: 048
     Dates: start: 20171128
  13. HEPARINOID [Concomitant]
     Active Substance: CHONDROITIN SULFATE (BOVINE)
     Indication: PRURITUS
     Dosage: UNK
     Route: 061
     Dates: start: 20180130

REACTIONS (2)
  - Cardiac perforation [Recovered/Resolved]
  - Atrioventricular block [Recovered/Resolved]

NARRATIVE: CASE EVENT DATE: 20180416
